FAERS Safety Report 9146087 (Version 1)
Quarter: 2013Q1

REPORT INFORMATION
  Report Type: Spontaneous
  Country: GB (occurrence: GB)
  Receive Date: 20130307
  Receipt Date: 20130307
  Transmission Date: 20140127
  Serious: Yes (Other)
  Sender: FDA-Public Use
  Company Number: -SANOFI-AVENTIS-2013SA018099

PATIENT
  Age: 43 Year
  Sex: Female
  Weight: 61.68 kg

DRUGS (3)
  1. CLOPIDOGREL BISULFATE [Suspect]
     Indication: CEREBROVASCULAR ACCIDENT
     Dosage: DOSE: 75 (UNITS UNSPECIFIED)
     Route: 065
     Dates: start: 20120915
  2. CLOPIDOGREL BISULFATE [Suspect]
     Indication: CEREBROVASCULAR ACCIDENT
     Dosage: DOSE: 75 (UNITS UNSPECIFIED)
     Route: 065
  3. CLOPIDOGREL BISULFATE [Suspect]
     Indication: CEREBROVASCULAR ACCIDENT
     Dosage: DOSE: 75 (UNITS UNSPECIFIED)
     Route: 065

REACTIONS (13)
  - Suicidal ideation [Recovered/Resolved]
  - Abasia [Recovered/Resolved]
  - Chest pain [Recovered/Resolved]
  - Arthropathy [Recovered/Resolved]
  - Oropharyngeal pain [Recovered/Resolved]
  - Oral pain [Recovered/Resolved]
  - Arthralgia [Recovered/Resolved]
  - Joint swelling [Recovered/Resolved]
  - Rash [Recovered/Resolved]
  - Pruritus [Recovered/Resolved]
  - Abdominal pain upper [Recovered/Resolved]
  - Myalgia [Recovered/Resolved]
  - Burning sensation [Recovered/Resolved]
